FAERS Safety Report 8318329-3 (Version None)
Quarter: 2012Q2

REPORT INFORMATION
  Report Type: 
  Country: None (occurrence: None)
  Receive Date: 20120426
  Receipt Date: 20120426
  Transmission Date: 20120825
  Serious: Yes (Life-Threatening, Hospitalization)
  Sender: FDA-Public Use
  Company Number: None

PATIENT
  Age: 72 Year
  Sex: Female
  Weight: 82.7 kg

DRUGS (3)
  1. ESTRACE [Suspect]
     Indication: PULMONARY EMBOLISM
     Dosage: ESTRACE 1 MG QD P.O.
     Route: 048
  2. CELEXA [Concomitant]
  3. LOVOYL [Concomitant]

REACTIONS (1)
  - PULMONARY EMBOLISM [None]
